FAERS Safety Report 18702569 (Version 1)
Quarter: 2021Q1

REPORT INFORMATION
  Report Type: Report from Study
  Country: MX (occurrence: MX)
  Receive Date: 20210105
  Receipt Date: 20210105
  Transmission Date: 20210419
  Serious: Yes (Other)
  Sender: FDA-Public Use
  Company Number: MX-SEATTLE GENETICS-2020SGN03119

PATIENT
  Sex: Female

DRUGS (1)
  1. BRENTUXIMAB VEDOTIN [Suspect]
     Active Substance: BRENTUXIMAB VEDOTIN
     Indication: HODGKIN^S DISEASE
     Dosage: 61 MILLIGRAM
     Route: 042
     Dates: start: 20200710

REACTIONS (7)
  - COVID-19 [Unknown]
  - Injection site erythema [Recovered/Resolved]
  - Spinal pain [Unknown]
  - Product dose omission issue [Unknown]
  - Bone pain [Unknown]
  - Anxiety [Unknown]
  - Chills [Unknown]
